FAERS Safety Report 9337167 (Version 1)
Quarter: 2013Q2

REPORT INFORMATION
  Report Type: Spontaneous
  Country: US (occurrence: US)
  Receive Date: 20130607
  Receipt Date: 20130607
  Transmission Date: 20140414
  Serious: No
  Sender: FDA-Public Use
  Company Number: US-PFIZER INC-2013170897

PATIENT
  Sex: Female
  Weight: 49.89 kg

DRUGS (2)
  1. ADVIL ALLERGY AND CONGESTION RELIEF [Suspect]
     Indication: HYPERSENSITIVITY
     Dosage: ONE TABLET, EVERY 4 HOURS
     Route: 048
     Dates: start: 20130602, end: 20130603
  2. ADVIL ALLERGY AND CONGESTION RELIEF [Suspect]
     Indication: NASAL CONGESTION

REACTIONS (1)
  - Drug ineffective [Unknown]
